FAERS Safety Report 7705020-7 (Version None)
Quarter: 2011Q3

REPORT INFORMATION
  Report Type: 
  Country: None (occurrence: None)
  Receive Date: 20110823
  Receipt Date: 20110322
  Transmission Date: 20111222
  Serious: Yes (Hospitalization)
  Sender: FDA-Public Use
  Company Number: US-ASTRAZENECA-2010SE41377

PATIENT
  Age: 50 Year
  Sex: Female

DRUGS (2)
  1. ATACAND [Suspect]
     Route: 048
  2. NEXIUM [Suspect]
     Route: 048

REACTIONS (11)
  - HIATUS HERNIA [None]
  - GASTRIC DISORDER [None]
  - DRUG DOSE OMISSION [None]
  - GASTRIC DILATATION [None]
  - ASTHENIA [None]
  - CHRONIC OBSTRUCTIVE PULMONARY DISEASE [None]
  - GASTROOESOPHAGEAL REFLUX DISEASE [None]
  - REGURGITATION [None]
  - OXYGEN SATURATION DECREASED [None]
  - MALAISE [None]
  - ASTHMA [None]
